FAERS Safety Report 11240029 (Version 1)
Quarter: 2015Q3

REPORT INFORMATION
  Report Type: Spontaneous
  Country: US (occurrence: US)
  Receive Date: 20150706
  Receipt Date: 20150706
  Transmission Date: 20151125
  Serious: No
  Sender: FDA-Public Use
  Company Number: US-PFIZER INC-2015220800

PATIENT
  Age: 38 Year
  Sex: Female
  Weight: 100 kg

DRUGS (23)
  1. TOPIRAMATE. [Concomitant]
     Active Substance: TOPIRAMATE
     Indication: APPETITE DISORDER
  2. MONTELUKAST [Concomitant]
     Active Substance: MONTELUKAST SODIUM
     Indication: HYPERSENSITIVITY
     Dosage: 10 MG, DAILY
     Route: 048
  3. B-COMPLEX /08453401/ [Concomitant]
     Indication: VITAMIN B COMPLEX DEFICIENCY
     Dosage: 100 MG, DAILY
  4. METHOTREXATE SODIUM. [Concomitant]
     Active Substance: METHOTREXATE SODIUM
     Indication: RHEUMATOID ARTHRITIS
     Dosage: 20 MG, WEEKLY, 2.5MG EIGHT TABLETS
     Route: 048
  5. CALCIUM + D3 /01483701/ [Concomitant]
     Indication: VITAMIN D DEFICIENCY
     Dosage: 1 DF, DAILY, [CALCIUM 600]/[COLECALCIFEROL 200]
     Route: 048
  6. OMEGA 3 /01334101/ [Concomitant]
     Active Substance: OMEGA-3 FATTY ACIDS
     Indication: PAIN
     Dosage: 2 DF, 2X/DAY
     Route: 048
  7. ACTEMRA [Concomitant]
     Active Substance: TOCILIZUMAB
     Indication: RHEUMATOID ARTHRITIS
     Dosage: UNK, MONTHLY
  8. LEVOTHYROXINE. [Concomitant]
     Active Substance: LEVOTHYROXINE
     Indication: HYPOTHYROIDISM
     Dosage: 125 ?G, DAILY
  9. FOLIC ACID. [Concomitant]
     Active Substance: FOLIC ACID
     Dosage: 2 MG, DAILY
     Route: 048
  10. UBIQUINOL [Concomitant]
     Active Substance: UBIQUINOL
     Dosage: 100 MG, DAILY
     Route: 048
  11. XELJANZ [Suspect]
     Active Substance: TOFACITINIB CITRATE
     Indication: RHEUMATOID ARTHRITIS
     Dosage: 5 MG, 2X/DAY
     Route: 048
     Dates: start: 20150501, end: 201505
  12. CHROMIUM POLYNICOTINATE [Concomitant]
     Indication: FOOD CRAVING
     Dosage: 400 ?G, UNK
  13. TOPIRAMATE. [Concomitant]
     Active Substance: TOPIRAMATE
     Indication: PAIN
     Dosage: 100 MG, 1X/DAY, AT BEDTIME
     Dates: start: 2014
  14. TOPIRAMATE. [Concomitant]
     Active Substance: TOPIRAMATE
     Indication: HEADACHE
  15. OMEPRAZOLE. [Concomitant]
     Active Substance: OMEPRAZOLE
     Indication: GASTROOESOPHAGEAL REFLUX DISEASE
     Dosage: 40 MG, 1X/DAY
  16. DULOXETINE. [Concomitant]
     Active Substance: DULOXETINE
     Indication: MYALGIA
     Dosage: 120 MG, DAILY, 60 MG 2 CAPSULES DAILY
     Route: 048
  17. CYANOCOBALAMIN. [Concomitant]
     Active Substance: CYANOCOBALAMIN
     Indication: VITAMIN B12 DEFICIENCY
     Dosage: 1000 MCG/ML, EVERY 2 WEEKS
  18. CURCUMEN [Concomitant]
     Indication: INFLAMMATION
     Dosage: 2 DF, 2X/DAY
     Route: 048
  19. XELJANZ [Suspect]
     Active Substance: TOFACITINIB CITRATE
     Dosage: 5 MG, 2X/DAY
     Route: 048
     Dates: start: 201505, end: 20150527
  20. CYCLOBENZAPRINE [Concomitant]
     Active Substance: CYCLOBENZAPRINE
     Indication: FIBROMYALGIA
     Dosage: 10 MG, 1X/DAY, AT BEDTIME
  21. GABAPENTIN. [Concomitant]
     Active Substance: GABAPENTIN
     Indication: FIBROMYALGIA
     Dosage: 700 MG, DAILY, 100MG ONE CAPSULE IN THE MORNING, ONE CAPSULE AT NOON AND FIVE CAPSULES AT BEDTIME
  22. B12 /00056201/ [Concomitant]
     Dosage: 5000 ?G, DAILY
     Route: 060
     Dates: start: 2014
  23. MIRENA [Concomitant]
     Active Substance: LEVONORGESTREL
     Indication: CONTRACEPTION
     Dosage: UNK
     Dates: start: 201312

REACTIONS (8)
  - Vision blurred [Unknown]
  - Blood test abnormal [Unknown]
  - Pharyngitis [Recovered/Resolved]
  - Diarrhoea [Recovered/Resolved]
  - Abdominal discomfort [Recovered/Resolved]
  - Product label issue [Unknown]
  - Flatulence [Not Recovered/Not Resolved]
  - Fatigue [Unknown]

NARRATIVE: CASE EVENT DATE: 201505
